FAERS Safety Report 25934300 (Version 1)
Quarter: 2025Q4

REPORT INFORMATION
  Report Type: Spontaneous
  Country: CN (occurrence: CN)
  Receive Date: 20251017
  Receipt Date: 20251017
  Transmission Date: 20260117
  Serious: Yes (Other)
  Sender: BAXTER
  Company Number: None

PATIENT
  Age: 43 Year
  Sex: Female
  Weight: 78 kg

DRUGS (4)
  1. CYCLOPHOSPHAMIDE [Suspect]
     Active Substance: CYCLOPHOSPHAMIDE
     Indication: Breast cancer female
     Dosage: 0.9 G, QD
     Route: 041
     Dates: start: 20250919, end: 20250919
  2. SODIUM CHLORIDE [Suspect]
     Active Substance: SODIUM CHLORIDE
     Indication: Medication dilution
     Dosage: 50 ML, QD WITH CYCLOPHOSPHAMIDE
     Route: 041
     Dates: start: 20250919, end: 20250919
  3. SODIUM CHLORIDE [Suspect]
     Active Substance: SODIUM CHLORIDE
     Dosage: 80 ML, QD WITH PACLITAXEL
     Route: 041
     Dates: start: 20250919, end: 20250919
  4. PACLITAXEL [Suspect]
     Active Substance: PACLITAXEL
     Indication: Breast cancer female
     Dosage: 0.4 G, QD
     Route: 041
     Dates: start: 20250919, end: 20250919

REACTIONS (1)
  - Leukopenia [Unknown]

NARRATIVE: CASE EVENT DATE: 20251009
